FAERS Safety Report 9509752 (Version 3)
Quarter: 2014Q4

REPORT INFORMATION
  Report Type: Report from Study
  Country: JP (occurrence: JP)
  Receive Date: 20130909
  Receipt Date: 20141223
  Transmission Date: 20150529
  Serious: Yes (Hospitalization, Other)
  Sender: FDA-Public Use
  Company Number: JP-TEVA-320803USA

PATIENT
  Age: 35 Year
  Sex: Male

DRUGS (11)
  1. QP KOWA GOLD [Concomitant]
     Route: 048
     Dates: start: 201105
  2. METALITE [Concomitant]
     Indication: HEPATO-LENTICULAR DEGENERATION
     Dosage: 1500 MILLIGRAM DAILY;
     Route: 048
     Dates: start: 20121110
  3. LOXONIN (LOXOPROFEN SODIUM HYDRATE) [Concomitant]
     Indication: HEADACHE
     Dosage: 60 MILLIGRAM DAILY;
     Route: 048
     Dates: start: 20130924
  4. ZINC [Suspect]
     Active Substance: ZINC\ZINC CHLORIDE
     Dosage: 75 MILLIGRAM DAILY;
     Route: 048
     Dates: start: 20080624, end: 20080721
  5. VITAMIN K [Concomitant]
     Active Substance: PHYTONADIONE
     Indication: HEPATO-LENTICULAR DEGENERATION
     Dosage: 10 MILLIGRAM DAILY;
     Route: 048
     Dates: start: 20101006, end: 20110531
  6. ZINC [Suspect]
     Active Substance: ZINC\ZINC CHLORIDE
     Indication: HEPATO-LENTICULAR DEGENERATION
     Dosage: 150 MILLIGRAM DAILY;
     Route: 048
     Dates: start: 20091025
  7. ZINC [Suspect]
     Active Substance: ZINC\ZINC CHLORIDE
     Dosage: 150 MILLIGRAM DAILY;
     Route: 048
     Dates: start: 20121110
  8. VITAMIN K [Concomitant]
     Active Substance: PHYTONADIONE
     Dosage: 5 MILLIGRAM DAILY;
     Route: 048
     Dates: start: 20121110
  9. PYRIDOXAL PHOSPHATE [Concomitant]
     Active Substance: PYRIDOXAL PHOSPHATE
     Dosage: 20 MILLIGRAM DAILY;
     Route: 048
     Dates: start: 20101006, end: 20110531
  10. TIZANIDINE HYDROCHLORIDE. [Concomitant]
     Active Substance: TIZANIDINE HYDROCHLORIDE
     Dosage: 3 MILLIGRAM DAILY;
     Route: 048
     Dates: start: 20101006, end: 20110531
  11. AKINETON [Concomitant]
     Active Substance: BIPERIDEN HYDROCHLORIDE
     Indication: HEPATO-LENTICULAR DEGENERATION
     Dosage: 2 MILLIGRAM DAILY;
     Route: 048
     Dates: start: 20121110

REACTIONS (3)
  - Bipolar I disorder [Recovering/Resolving]
  - Schizophrenia [Unknown]
  - Suicide attempt [Recovered/Resolved]

NARRATIVE: CASE EVENT DATE: 2011
